FAERS Safety Report 6181137-6 (Version None)
Quarter: 2009Q2

REPORT INFORMATION
  Report Type: 
  Country: None (occurrence: None)
  Receive Date: 20090506
  Receipt Date: 20090504
  Transmission Date: 20091009
  Serious: Yes (Life-Threatening, Hospitalization, Other)
  Sender: FDA-Public Use
  Company Number: PHHY2009NO10745

PATIENT
  Sex: Male

DRUGS (5)
  1. EXELON [Suspect]
     Indication: DEMENTIA ALZHEIMER'S TYPE
     Dosage: 4.5 MG, QD
     Route: 062
     Dates: start: 20090220, end: 20090324
  2. EXELON [Suspect]
     Indication: DEMENTIA
     Dosage: 9.5 MG, QD
     Route: 062
     Dates: start: 20090310
  3. MELATONIN [Suspect]
     Indication: INSOMNIA
     Dosage: 3 MG
     Dates: start: 20090301, end: 20090324
  4. EBIXA [Suspect]
     Indication: DEMENTIA
     Dosage: UNK
     Dates: start: 20090201, end: 20090310
  5. TRIOBE [Concomitant]
     Indication: VITAMIN B12 DEFICIENCY
     Dosage: UNK
     Dates: start: 20090309

REACTIONS (5)
  - CYTOMEGALOVIRUS ANTIBODY POSITIVE [None]
  - HEPATIC FAILURE [None]
  - HEPATITIS A [None]
  - HEPATITIS CHOLESTATIC [None]
  - HEPATOTOXICITY [None]
